FAERS Safety Report 11398451 (Version 2)
Quarter: 2015Q4

REPORT INFORMATION
  Report Type: Report from Study
  Country: US (occurrence: US)
  Receive Date: 20150820
  Receipt Date: 20151117
  Transmission Date: 20160304
  Serious: Yes (Other)
  Sender: FDA-Public Use
  Company Number: US-AMGEN-USASL2015083309

PATIENT
  Age: 49 Year
  Sex: Male

DRUGS (2)
  1. ENBREL [Suspect]
     Active Substance: ETANERCEPT
     Indication: RHEUMATOID ARTHRITIS
     Dosage: 50 MG, QWK
     Route: 065
     Dates: start: 20150429
  2. ENBREL [Suspect]
     Active Substance: ETANERCEPT
     Dosage: UNK UNK, UNK
     Route: 065

REACTIONS (7)
  - Rheumatoid arthritis [Unknown]
  - Skin lesion [Recovering/Resolving]
  - Arthropod sting [Recovering/Resolving]
  - No therapeutic response [Unknown]
  - Nail disorder [Unknown]
  - Pruritus [Recovering/Resolving]
  - Finger deformity [Unknown]

NARRATIVE: CASE EVENT DATE: 2015
